FAERS Safety Report 4369768-7 (Version None)
Quarter: 2004Q2

REPORT INFORMATION
  Report Type: 
  Country: None (occurrence: None)
  Receive Date: 20040525
  Receipt Date: 20040510
  Transmission Date: 20050107
  Serious: Yes (Death, Hospitalization)
  Sender: FDA-Public Use
  Company Number: 173894

PATIENT
  Age: 52 Year
  Sex: Female

DRUGS (3)
  1. AVONEX [Suspect]
     Indication: MULTIPLE SCLEROSIS
     Dosage: 30 MCG QW IM
     Route: 030
     Dates: start: 20020801, end: 20030601
  2. COPAXONE [Concomitant]
  3. CARBAMAZEPINE [Concomitant]

REACTIONS (20)
  - ANOREXIA [None]
  - ATAXIA [None]
  - CARDIAC ARREST [None]
  - COMA [None]
  - DEHYDRATION [None]
  - DIARRHOEA [None]
  - DISEASE RECURRENCE [None]
  - DIVERTICULUM INTESTINAL [None]
  - DRUG INTOLERANCE [None]
  - FOOD AVERSION [None]
  - GASTROINTESTINAL INFECTION [None]
  - HAEMATOCHEZIA [None]
  - HAEMATOCRIT DECREASED [None]
  - HAEMOGLOBIN DECREASED [None]
  - MULTIPLE SCLEROSIS [None]
  - OVARIAN CYST [None]
  - PROCTITIS [None]
  - RED BLOOD CELL COUNT DECREASED [None]
  - SOMNOLENCE [None]
  - WEIGHT DECREASED [None]
